FAERS Safety Report 7782596-5 (Version None)
Quarter: 2011Q3

REPORT INFORMATION
  Report Type: 
  Country: None (occurrence: None)
  Receive Date: 20110923
  Receipt Date: 20110916
  Transmission Date: 20111222
  Serious: Yes (Hospitalization, Other)
  Sender: FDA-Public Use
  Company Number: 2010SP019048

PATIENT
  Age: 24 Year
  Sex: Female
  Weight: 59.8748 kg

DRUGS (1)
  1. NUVARING [Suspect]
     Indication: CONTRACEPTION
     Dates: start: 20080228, end: 20080401

REACTIONS (16)
  - PULMONARY EMBOLISM [None]
  - HYPERCOAGULATION [None]
  - HEARING IMPAIRED [None]
  - VIRAL INFECTION [None]
  - MENTAL DISORDER [None]
  - TACHYCARDIA [None]
  - TINNITUS [None]
  - TEMPERATURE INTOLERANCE [None]
  - LEUKOPENIA [None]
  - FIBRIN D DIMER INCREASED [None]
  - THROMBOCYTOPENIA [None]
  - PULMONARY INFARCTION [None]
  - SUPRAVENTRICULAR TACHYCARDIA [None]
  - ANXIETY [None]
  - HAEMOPTYSIS [None]
  - VISION BLURRED [None]
